FAERS Safety Report 13435617 (Version 3)
Quarter: 2017Q2

REPORT INFORMATION
  Report Type: Spontaneous
  Country: US (occurrence: US)
  Receive Date: 20170413
  Receipt Date: 20170629
  Transmission Date: 20170830
  Serious: Yes (Hospitalization, Other)
  Sender: FDA-Public Use
  Company Number: US-BRISTOL-MYERS SQUIBB COMPANY-BMS-2017-032034

PATIENT
  Sex: Male
  Weight: 99.79 kg

DRUGS (2)
  1. YERVOY [Suspect]
     Active Substance: IPILIMUMAB
     Indication: PRODUCT USED FOR UNKNOWN INDICATION
     Dosage: UNK
     Route: 065
     Dates: start: 20161018
  2. YERVOY [Suspect]
     Active Substance: IPILIMUMAB
     Indication: MALIGNANT MELANOMA
     Dosage: 993 MG, UNK
     Route: 042
     Dates: start: 20161018

REACTIONS (5)
  - Head injury [Unknown]
  - Hepatitis [Unknown]
  - Anal incontinence [Unknown]
  - Fall [Unknown]
  - Diabetes mellitus [Unknown]
